FAERS Safety Report 4648684-7 (Version None)
Quarter: 2005Q2

REPORT INFORMATION
  Report Type: 
  Country: None (occurrence: None)
  Receive Date: 20050427
  Receipt Date: 20050411
  Transmission Date: 20051028
  Serious: Yes (Hospitalization)
  Sender: FDA-Public Use
  Company Number: FR_050406215

PATIENT
  Age: 72 Year
  Sex: Female

DRUGS (11)
  1. PROZAC [Suspect]
     Dosage: 40 MG DAY
     Dates: start: 20040312
  2. NOCTRAN [Concomitant]
  3. TERCIAN (CYAMEMAZINE) [Concomitant]
  4. NORDAZ (NORDAZEPAM) [Concomitant]
  5. HYPERIUM (RILMENIDINE) [Concomitant]
  6. GLYBURIDE [Concomitant]
  7. NITRENDIPINE [Concomitant]
  8. RABEPRAZOLE SODIUM [Concomitant]
  9. VENTOLIN [Concomitant]
  10. SERETIDE [Concomitant]
  11. ATROVENT [Concomitant]

REACTIONS (4)
  - CHRONIC OBSTRUCTIVE PULMONARY DISEASE [None]
  - RENAL FAILURE [None]
  - RESPIRATORY ACIDOSIS [None]
  - RESPIRATORY TRACT INFECTION [None]
